FAERS Safety Report 12411135 (Version 2)
Quarter: 2016Q2

REPORT INFORMATION
  Report Type: Spontaneous
  Country: US (occurrence: US)
  Receive Date: 20160527
  Receipt Date: 20160527
  Transmission Date: 20160815
  Serious: No
  Sender: FDA-Public Use
  Company Number: US-BAYER-2016-098235

PATIENT
  Sex: Male

DRUGS (2)
  1. NEXAVAR [Suspect]
     Active Substance: SORAFENIB
     Indication: RENAL CELL CARCINOMA
     Dosage: 600 MG, QD (TAKE TWO TABLETS, 600 MG DAILY DOSE)
     Route: 048
     Dates: start: 201603
  2. ADALAT CC [Suspect]
     Active Substance: NIFEDIPINE
     Indication: RENAL CELL CARCINOMA
     Dosage: 60 MG, BID (TAKE ONE TABLET BY MOUTH TWICE A DAY)
     Route: 048
     Dates: start: 201603

REACTIONS (1)
  - Skin disorder [None]
